FAERS Safety Report 8589876-4 (Version None)
Quarter: 2012Q3

REPORT INFORMATION
  Report Type: 
  Country: None (occurrence: None)
  Receive Date: 20120813
  Receipt Date: 20120802
  Transmission Date: 20120928
  Serious: Yes (Other)
  Sender: FDA-Public Use
  Company Number: US-ASTRAZENECA-2012SE54682

PATIENT
  Age: 56 Year
  Sex: Female
  Weight: 109.8 kg

DRUGS (9)
  1. NEXIUM [Suspect]
     Indication: GASTROOESOPHAGEAL REFLUX DISEASE
     Route: 048
     Dates: start: 20040101
  2. MORPHINE [Concomitant]
     Indication: PAIN
     Route: 048
     Dates: start: 20120401
  3. ISOSORBIDE [Concomitant]
     Indication: CARDIAC DISORDER
     Route: 048
     Dates: start: 20120701
  4. PROPRANOLOL [Concomitant]
     Indication: CARDIAC DISORDER
     Route: 048
     Dates: start: 20120701
  5. THORAZADONE [Concomitant]
     Indication: SLEEP DISORDER
     Route: 048
     Dates: start: 20000101
  6. PRAVASTATIN [Concomitant]
     Indication: BLOOD CHOLESTEROL ABNORMAL
     Route: 048
     Dates: start: 20120701
  7. METOPROLOL TARTRATE [Concomitant]
     Indication: CARDIAC DISORDER
     Route: 048
     Dates: start: 20120101
  8. PROZAC [Concomitant]
     Indication: DEPRESSION
     Route: 048
     Dates: start: 20040101
  9. AMITRIPTYLINE HCL [Concomitant]
     Indication: SLEEP DISORDER
     Route: 048
     Dates: start: 20000101

REACTIONS (4)
  - BLOOD CHOLESTEROL INCREASED [None]
  - DEPRESSION [None]
  - MYOCARDIAL INFARCTION [None]
  - INTENTIONAL DRUG MISUSE [None]
